FAERS Safety Report 16232133 (Version 1)
Quarter: 2019Q2

REPORT INFORMATION
  Report Type: Spontaneous
  Country: CN (occurrence: CN)
  Receive Date: 20190424
  Receipt Date: 20190424
  Transmission Date: 20190711
  Serious: Yes (Hospitalization)
  Sender: FDA-Public Use
  Company Number: CN-ELI_LILLY_AND_COMPANY-CN201904008239

PATIENT
  Age: 61 Year
  Sex: Male
  Weight: 83 kg

DRUGS (1)
  1. INSULIN HUMAN [Suspect]
     Active Substance: INSULIN HUMAN
     Indication: DIABETES MELLITUS
     Dosage: 25 IU, BID(20-25 UNIT PER TIME)
     Route: 058
     Dates: start: 2009, end: 201904

REACTIONS (2)
  - Speech disorder [Unknown]
  - Cerebral infarction [Unknown]
